FAERS Safety Report 5136540-X (Version None)
Quarter: 2006Q4

REPORT INFORMATION
  Report Type: 
  Country: None (occurrence: None)
  Receive Date: 20061027
  Receipt Date: 20061025
  Transmission Date: 20070319
  Serious: Yes (Other)
  Sender: FDA-Public Use
  Company Number: GB-BOEHRINGER INGELHEIM PHARMACEUTICALS, INC.-2006-UK-04389UK

PATIENT
  Age: 52 Year
  Sex: Female
  Weight: 71 kg

DRUGS (3)
  1. MOBIC [Suspect]
     Indication: ARTHRALGIA
     Route: 048
  2. LANSOPRAZOLE [Suspect]
     Indication: HIATUS HERNIA
  3. GAMANIL [Concomitant]
     Indication: DEPRESSION
     Route: 048

REACTIONS (3)
  - ANTINUCLEAR ANTIBODY POSITIVE [None]
  - ARTHRALGIA [None]
  - SYSTEMIC LUPUS ERYTHEMATOSUS [None]
